FAERS Safety Report 9198013 (Version 1)
Quarter: 2013Q1

REPORT INFORMATION
  Report Type: Other
  Country: FR (occurrence: FR)
  Receive Date: 20130328
  Receipt Date: 20130328
  Transmission Date: 20140127
  Serious: Yes (Hospitalization)
  Sender: FDA-Public Use
  Company Number: FR-NICOBRDEVP-2013-05063

PATIENT
  Age: 74 Year
  Sex: Female

DRUGS (3)
  1. CIPROFLOXACIN [Suspect]
     Indication: MYCOBACTERIAL INFECTION
     Dosage: 500 MG, BID
     Route: 048
     Dates: start: 20121108, end: 20121121
  2. RIFADINE [Suspect]
     Indication: MYCOBACTERIAL INFECTION
     Dosage: 300 MG, DAILY
     Route: 048
     Dates: start: 20121109
  3. CLARITHROMYCIN [Suspect]
     Indication: MYCOBACTERIAL INFECTION
     Dosage: 500 MG, BID
     Route: 048
     Dates: start: 20121108

REACTIONS (5)
  - Epilepsy [Recovered/Resolved]
  - Malaise [None]
  - Confusional state [None]
  - Partial seizures [None]
  - Grand mal convulsion [None]
